FAERS Safety Report 15808876 (Version 2)
Quarter: 2019Q1

REPORT INFORMATION
  Report Type: Spontaneous
  Country: US (occurrence: US)
  Receive Date: 20190110
  Receipt Date: 20190118
  Transmission Date: 20190417
  Serious: No
  Sender: FDA-Public Use
  Company Number: US-STRONGBRIDGE BIOPHARMA-2019-STR-000004

PATIENT
  Age: 28 Year
  Sex: Female

DRUGS (1)
  1. KEVEYIS [Suspect]
     Active Substance: DICHLORPHENAMIDE
     Indication: FAMILIAL PERIODIC PARALYSIS
     Dosage: 50 MG, BID
     Route: 048
     Dates: start: 20181231, end: 20190103

REACTIONS (5)
  - Fatigue [Unknown]
  - Vomiting [Unknown]
  - Headache [Unknown]
  - Heart rate irregular [Unknown]
  - Nausea [Unknown]

NARRATIVE: CASE EVENT DATE: 20190103
